FAERS Safety Report 8639556 (Version 8)
Quarter: 2013Q3

REPORT INFORMATION
  Report Type: Report from Study
  Country: JP (occurrence: JP)
  Receive Date: 20120627
  Receipt Date: 20130927
  Transmission Date: 20140515
  Serious: Yes (Hospitalization)
  Sender: FDA-Public Use
  Company Number: JP-JNJFOC-20120611691

PATIENT
  Age: 83 Year
  Sex: Male
  Weight: 60 kg

DRUGS (23)
  1. USTEKINUMAB [Suspect]
     Indication: PSORIASIS
     Route: 058
     Dates: start: 20120228, end: 20120228
  2. USTEKINUMAB [Suspect]
     Indication: PSORIASIS
     Route: 058
     Dates: start: 20111108, end: 20111108
  3. USTEKINUMAB [Suspect]
     Indication: PSORIASIS
     Route: 058
     Dates: start: 20111206, end: 20111206
  4. METHOTREXATE [Suspect]
     Indication: PRODUCT USED FOR UNKNOWN INDICATION
  5. NEORAL [Suspect]
     Indication: PSORIASIS
     Route: 048
     Dates: start: 20111228, end: 20120124
  6. NEORAL [Suspect]
     Indication: PSORIASIS
     Route: 048
     Dates: start: 20111109, end: 20111205
  7. NEORAL [Suspect]
     Indication: PSORIASIS
     Route: 048
     Dates: start: 20111206, end: 20111227
  8. ALLELOCK [Concomitant]
     Indication: PSORIASIS
     Route: 048
     Dates: start: 20120410, end: 20120614
  9. ALL OTHER THERAPEUTIC PRODUCTS [Concomitant]
     Route: 048
  10. TIGASON [Concomitant]
     Indication: PSORIASIS
     Route: 048
     Dates: start: 20120228, end: 20120605
  11. ALL OTHER THERAPEUTIC PRODUCTS [Concomitant]
     Route: 042
  12. MUCOSTA [Concomitant]
     Route: 048
     Dates: start: 20111220
  13. DEXCHLORPHENIRAMINE MALEATE [Concomitant]
     Indication: PSORIASIS
     Route: 048
     Dates: start: 20111220
  14. CARDENALIN [Concomitant]
     Route: 048
  15. BUP-4 [Concomitant]
     Route: 048
  16. UBRETID [Concomitant]
     Route: 048
  17. URIEF [Concomitant]
     Route: 048
  18. DOVONEX [Concomitant]
     Indication: PSORIASIS
     Route: 061
  19. LOCOID [Concomitant]
     Indication: PSORIASIS
     Route: 061
  20. FULMETA [Concomitant]
     Indication: PSORIASIS
     Route: 061
  21. PASTARON [Concomitant]
     Indication: PSORIASIS
     Route: 061
  22. GENTACIN [Concomitant]
     Indication: PSORIASIS
     Route: 061
  23. ALLEGRA [Concomitant]
     Indication: PSORIASIS
     Route: 048
     Dates: start: 20111220, end: 20120521

REACTIONS (2)
  - Interstitial lung disease [Recovering/Resolving]
  - Drug ineffective [Unknown]
